FAERS Safety Report 7905772-7 (Version None)
Quarter: 2011Q4

REPORT INFORMATION
  Report Type: 
  Country: None (occurrence: None)
  Receive Date: 20111110
  Receipt Date: 20111031
  Transmission Date: 20120403
  Serious: Yes (Hospitalization)
  Sender: FDA-Public Use
  Company Number: GB-JNJFOC-20111013460

PATIENT
  Age: 28 Year
  Sex: Female

DRUGS (6)
  1. METHOTREXATE [Concomitant]
     Dates: start: 20080420
  2. ACETAMINOPHEN [Concomitant]
     Dates: start: 20080420
  3. REMICADE [Suspect]
     Indication: PSORIASIS
     Route: 042
     Dates: start: 20080325
  4. FLUTICASONE PROPIONATE/SALMETEROL [Concomitant]
     Dates: start: 20080420
  5. REMICADE [Suspect]
     Route: 042
     Dates: start: 20090224, end: 20090224
  6. VENTOLIN [Concomitant]
     Dates: start: 20080420

REACTIONS (4)
  - INFUSION RELATED REACTION [None]
  - BRONCHOSPASM [None]
  - OEDEMA MUCOSAL [None]
  - TACHYCARDIA [None]
